FAERS Safety Report 6114977-X (Version None)
Quarter: 2009Q1

REPORT INFORMATION
  Report Type: 
  Country: None (occurrence: None)
  Receive Date: 20090313
  Receipt Date: 20090302
  Transmission Date: 20090719
  Serious: Yes (Death, Hospitalization)
  Sender: FDA-Public Use
  Company Number: SE-PFIZER INC-2009178363

PATIENT

DRUGS (2)
  1. MISOPROSTOL, DICLOFENAC SODIUM [Suspect]
     Indication: ARTHRITIS
     Dosage: UNK
     Route: 048
     Dates: start: 20081120, end: 20081220
  2. PREDNISOLONE [Concomitant]
     Indication: ARTHROPATHY

REACTIONS (3)
  - CARDIAC FAILURE [None]
  - RENAL FAILURE [None]
  - VASCULITIS [None]
